FAERS Safety Report 17017947 (Version 1)
Quarter: 2019Q4

REPORT INFORMATION
  Report Type: Report from Study
  Country: ES (occurrence: ES)
  Receive Date: 20191111
  Receipt Date: 20191111
  Transmission Date: 20200122
  Serious: Yes (Death)
  Sender: FDA-Public Use
  Company Number: ES-B.I. PHARMACEUTICALS,INC./RIDGEFIELD-2019-BI-113081

PATIENT
  Age: 58 Year
  Sex: Male

DRUGS (1)
  1. PRAXBIND [Suspect]
     Active Substance: IDARUCIZUMAB
     Indication: PROCOAGULANT THERAPY
     Route: 065

REACTIONS (5)
  - Cardiac arrest [Fatal]
  - Cardiogenic shock [Fatal]
  - Coagulopathy [Fatal]
  - Shock haemorrhagic [Fatal]
  - Neurogenic shock [Fatal]
